FAERS Safety Report 5120862-2 (Version None)
Quarter: 2006Q4

REPORT INFORMATION
  Report Type: 
  Country: None (occurrence: None)
  Receive Date: 20061005
  Receipt Date: 20060407
  Transmission Date: 20070319
  Serious: Yes (Other)
  Sender: FDA-Public Use
  Company Number: PHBS2006BR05158

PATIENT
  Age: 54 Year
  Sex: Female
  Weight: 60 kg

DRUGS (4)
  1. CODATEN [Suspect]
     Indication: MUSCLE RELAXANT THERAPY
     Dosage: 1 DF, ONCE/SINGLE
     Route: 048
  2. CAPOTEN [Concomitant]
     Indication: HYPERTENSION
     Route: 048
  3. LEXOTAN [Concomitant]
     Route: 048
  4. CORGARD [Concomitant]
     Indication: TACHYCARDIA
     Route: 048

REACTIONS (7)
  - ABDOMINAL PAIN UPPER [None]
  - APHONIA [None]
  - CHEST PAIN [None]
  - DYSPEPSIA [None]
  - DYSPNOEA [None]
  - MALAISE [None]
  - PALPITATIONS [None]
